FAERS Safety Report 9324855 (Version 2)
Quarter: 2013Q3

REPORT INFORMATION
  Report Type: Report from Study
  Country: US (occurrence: US)
  Receive Date: 20130603
  Receipt Date: 20130709
  Transmission Date: 20140515
  Serious: Yes (Hospitalization)
  Sender: FDA-Public Use
  Company Number: PHEH2013US009914

PATIENT
  Age: 82 Year
  Sex: Female

DRUGS (17)
  1. TOBI [Suspect]
     Indication: CYSTIC FIBROSIS
     Dosage: UNK, 56/PK 28 DAYS ON THEN 28 DAYS.
     Dates: start: 20130430
  2. CENTRUM SILVER [Concomitant]
     Dosage: UNK
  3. PREDNISONE [Concomitant]
     Dosage: 1 MG
  4. CLONAZEPAM [Concomitant]
     Dosage: 0.5 MG
  5. NADOLOL [Concomitant]
     Dosage: 20 MG
  6. MIRTAZAPINE [Concomitant]
     Dosage: 45 MG ODT
  7. CALCIUM ANTACID [Concomitant]
     Dosage: UNK
  8. ASPIRIN [Concomitant]
     Dosage: 81 MG
  9. BENICAR [Concomitant]
     Dosage: 20 MG
  10. B1 VITAMIN [Concomitant]
     Dosage: 100 MG
  11. MUCINEX [Concomitant]
     Dosage: 1200 MG
  12. LORTAB [Concomitant]
     Dosage: UNK
  13. ALKA SELTZER [Concomitant]
     Dosage: UNK
  14. SIMETHICONE [Concomitant]
     Dosage: UNK
  15. MULTI-VIT [Concomitant]
     Dosage: UNK
  16. REMERON [Concomitant]
     Dosage: UNK
  17. HYDROCODONE COMPOUND [Concomitant]
     Dosage: UNK

REACTIONS (7)
  - Pseudomonas infection [Recovered/Resolved]
  - Dyspepsia [Unknown]
  - Gastric disorder [Unknown]
  - Discomfort [Unknown]
  - Fatigue [Unknown]
  - Increased upper airway secretion [Not Recovered/Not Resolved]
  - Asthenia [Unknown]
